FAERS Safety Report 24580863 (Version 2)
Quarter: 2024Q4

REPORT INFORMATION
  Report Type: Spontaneous
  Country: US (occurrence: US)
  Receive Date: 20241105
  Receipt Date: 20241119
  Transmission Date: 20250114
  Serious: No
  Sender: BAYER HEALTHCARE PHARMACEUTICALS INC.
  Company Number: US-BAYER-2024A157394

PATIENT
  Age: 34 Year
  Sex: Female
  Weight: 69.4 kg

DRUGS (3)
  1. MIRENA [Suspect]
     Active Substance: LEVONORGESTREL
     Indication: Intrauterine contraception
     Dosage: 20?G/DAY
     Route: 015
     Dates: start: 202402
  2. ORTHO TRI CYCLEN LO [Concomitant]
     Active Substance: ETHINYL ESTRADIOL\NORGESTIMATE
     Dosage: 1 DF, QD
     Route: 048
     Dates: start: 20240209
  3. SLYND [Concomitant]
     Active Substance: DROSPIRENONE
     Indication: Contraception
     Dosage: 4 MG, QD
     Route: 048
     Dates: start: 20240510

REACTIONS (3)
  - Device dislocation [Not Recovered/Not Resolved]
  - Vaginal haemorrhage [Recovered/Resolved]
  - Product monitoring error [None]

NARRATIVE: CASE EVENT DATE: 20240510
